FAERS Safety Report 13515640 (Version 2)
Quarter: 2017Q4

REPORT INFORMATION
  Report Type: Spontaneous
  Country: US (occurrence: US)
  Receive Date: 20170504
  Receipt Date: 20171228
  Transmission Date: 20180320
  Serious: Yes (Life-Threatening, Other)
  Sender: FDA-Public Use
  Company Number: US-BAUSCH-BL-2017-012711

PATIENT
  Age: 53 Year
  Sex: Male

DRUGS (4)
  1. PHENYLEPHRINE [Suspect]
     Active Substance: PHENYLEPHRINE\PHENYLEPHRINE HYDROCHLORIDE
     Indication: HYPOTENSION
     Dosage: CONTINUOUS INTRAVENOUS INFUSION
     Route: 041
  2. NOREPINEPHRINE. [Suspect]
     Active Substance: NOREPINEPHRINE
     Indication: HYPOTENSION
     Dosage: CONTINUOUS INTRAVENOUS INFUSION
     Route: 041
  3. DOBUTAMINE [Suspect]
     Active Substance: DOBUTAMINE\DOBUTAMINE HYDROCHLORIDE
     Indication: HYPOTENSION
     Dosage: CONTINUOUS INTRAVENOUS INFUSION
     Route: 041
  4. VASOPRESSIN. [Suspect]
     Active Substance: VASOPRESSIN
     Indication: HYPOTENSION
     Dosage: CONTINUOUS INTRAVENOUS INFUSION
     Route: 041

REACTIONS (1)
  - Drug ineffective [Unknown]
